FAERS Safety Report 6815235-8 (Version None)
Quarter: 2010Q3

REPORT INFORMATION
  Report Type: 
  Country: None (occurrence: None)
  Receive Date: 20100701
  Receipt Date: 20100701
  Transmission Date: 20110219
  Serious: Yes (Hospitalization)
  Sender: FDA-Public Use
  Company Number: None

PATIENT
  Age: 61 Year
  Sex: Male
  Weight: 68.0396 kg

DRUGS (1)
  1. MIDAZOLAM HCL [Suspect]
     Dosage: TWO
     Dates: start: 20100421, end: 20100421

REACTIONS (5)
  - AMNESIA [None]
  - CARDIAC ARREST [None]
  - COMA [None]
  - DISORIENTATION [None]
  - HYPERTHERMIA [None]
